FAERS Safety Report 14594995 (Version 1)
Quarter: 2018Q1

REPORT INFORMATION
  Report Type: Spontaneous
  Country: US (occurrence: US)
  Receive Date: 20180302
  Receipt Date: 20180302
  Transmission Date: 20180509
  Serious: No
  Sender: FDA-Public Use
  Company Number: US-AKORN PHARMACEUTICALS-2017AKN00820

PATIENT
  Age: 19 Year
  Sex: Male
  Weight: 57.6 kg

DRUGS (6)
  1. MOMETASONE SPRAY [Concomitant]
  2. SUMATRIPTAN. [Concomitant]
     Active Substance: SUMATRIPTAN
  3. MYORISAN [Suspect]
     Active Substance: ISOTRETINOIN
     Indication: ACNE
     Dosage: 20 MG, 1X/DAY
     Route: 048
     Dates: start: 20170509, end: 20170516
  4. LATANOPROST. [Concomitant]
     Active Substance: LATANOPROST
  5. DORZOLAMIDE-TIMOLOL [Concomitant]
     Active Substance: DORZOLAMIDE\TIMOLOL
  6. PROPRANOLOL [Concomitant]
     Active Substance: PROPRANOLOL HYDROCHLORIDE

REACTIONS (1)
  - Angioedema [Recovered/Resolved]

NARRATIVE: CASE EVENT DATE: 20170516
